FAERS Safety Report 24269619 (Version 1)
Quarter: 2024Q3

REPORT INFORMATION
  Report Type: Spontaneous
  Country: US (occurrence: None)
  Receive Date: 20240830
  Receipt Date: 20240830
  Transmission Date: 20241016
  Serious: Yes (Hospitalization)
  Sender: Public
  Company Number: None

PATIENT
  Sex: Female

DRUGS (3)
  1. OPSUMIT [Suspect]
     Active Substance: MACITENTAN
     Indication: Pulmonary arterial hypertension
     Dosage: FREQUENCY : DAILY;?
     Route: 048
     Dates: start: 202003
  2. WINREVAIR SDV (2/KIT) [Concomitant]
  3. REMODULIN MDV [Concomitant]

REACTIONS (3)
  - Weight increased [None]
  - Fluid retention [None]
  - Dyspnoea exertional [None]
